FAERS Safety Report 5712834-1 (Version None)
Quarter: 2008Q2

REPORT INFORMATION
  Report Type: 
  Country: None (occurrence: None)
  Receive Date: 20080421
  Receipt Date: 20080421
  Transmission Date: 20081010
  Serious: Yes (Hospitalization)
  Sender: FDA-Public Use
  Company Number: None

PATIENT
  Age: 52 Year
  Sex: Male
  Weight: 80 kg

DRUGS (4)
  1. PERMETREXED [Suspect]
     Indication: PROSTATE CANCER
     Dosage: 500 MG/M2  Q 21 DAYS  I
     Dates: start: 20070314, end: 20080411
  2. FOLIC ACID [Concomitant]
  3. COLACE [Concomitant]
  4. ZOFRAN [Concomitant]

REACTIONS (2)
  - BACK PAIN [None]
  - SPINAL CORD COMPRESSION [None]
